FAERS Safety Report 22798567 (Version 4)
Quarter: 2023Q4

REPORT INFORMATION
  Report Type: Spontaneous
  Country: US (occurrence: US)
  Receive Date: 20230808
  Receipt Date: 20231116
  Transmission Date: 20240110
  Serious: No
  Sender: FDA-Public Use
  Company Number: US-SA-SAC20230807000517

PATIENT
  Age: 25 Year
  Sex: Female

DRUGS (2)
  1. DUPIXENT [Suspect]
     Active Substance: DUPILUMAB
     Indication: Chronic rhinosinusitis with nasal polyps
     Dosage: 300 MG, QOW
     Route: 058
     Dates: start: 20230701
  2. DUPIXENT [Suspect]
     Active Substance: DUPILUMAB
     Dosage: DOSE: 300MG FREQUENCY: EVERY 14 DAYS
     Route: 058
     Dates: start: 20230701

REACTIONS (11)
  - Rhinorrhoea [Unknown]
  - Condition aggravated [Unknown]
  - Rash pruritic [Recovering/Resolving]
  - Rash erythematous [Recovered/Resolved]
  - Nasal obstruction [Unknown]
  - Nasal congestion [Unknown]
  - Nausea [Unknown]
  - Scratch [Unknown]
  - Injection site erythema [Unknown]
  - Injection site swelling [Unknown]
  - Injection site pain [Recovered/Resolved]

NARRATIVE: CASE EVENT DATE: 20230101
